FAERS Safety Report 6290904-X (Version None)
Quarter: 2009Q3

REPORT INFORMATION
  Report Type: 
  Country: None (occurrence: None)
  Receive Date: 20090730
  Receipt Date: 20090720
  Transmission Date: 20100115
  Serious: Yes (Other)
  Sender: FDA-Public Use
  Company Number: PHHY2009FR08736

PATIENT
  Sex: Male

DRUGS (10)
  1. EXFORGE [Suspect]
     Indication: HYPERTENSION
     Dosage: 1 TABLET ONCE DAILY
     Route: 048
     Dates: start: 20081114, end: 20081122
  2. ALDACTONE [Concomitant]
     Dosage: 25 MG, QD
     Route: 048
  3. KARDEGIC [Concomitant]
     Dosage: 75 MG, QD
     Route: 048
  4. PHYSIOTENS [Concomitant]
     Dosage: 0.4 MG, BID
     Route: 048
  5. NOVONORM [Concomitant]
     Dosage: 2 MG, QD
     Route: 048
  6. METFORMIN HCL [Concomitant]
     Dosage: 1000 MG, TID
     Route: 048
  7. LEVOTHYROX [Concomitant]
     Dosage: 75 MG, QD
     Route: 048
  8. KALEORID [Concomitant]
     Dosage: 1000 MG, BID
     Route: 048
  9. PERMIXON [Concomitant]
     Dosage: 160 MG, QD
     Route: 048
  10. PARIET [Concomitant]
     Dosage: 10 MG, QD
     Route: 048

REACTIONS (7)
  - CARDIAC FAILURE [None]
  - ERYTHEMA [None]
  - MALAISE [None]
  - PRURITUS [None]
  - RASH [None]
  - SKIN EXFOLIATION [None]
  - TOXIC SKIN ERUPTION [None]
